FAERS Safety Report 15065533 (Version 6)
Quarter: 2019Q3

REPORT INFORMATION
  Report Type: Report from Study
  Country: ES (occurrence: ES)
  Receive Date: 20180626
  Receipt Date: 20190710
  Transmission Date: 20191004
  Serious: Yes (Other)
  Sender: FDA-Public Use
  Company Number: ES-ROCHE-2142713

PATIENT
  Age: 69 Year
  Sex: Male
  Weight: 78.8 kg

DRUGS (6)
  1. CYCLOPHOSPHAMIDE. [Suspect]
     Active Substance: CYCLOPHOSPHAMIDE
     Indication: NON-HODGKIN^S LYMPHOMA
     Dosage: DATE OF MOST RECENT DOSE (1170 MG) OF CYCLOPHOSPHAMIDE PRIOR TO SAE ONSET: 02/SEP/2016 AT 14:10
     Route: 042
     Dates: start: 20160506
  2. PREDNISONE. [Suspect]
     Active Substance: PREDNISONE
     Indication: NON-HODGKIN^S LYMPHOMA
     Dosage: DATE OF MOST RECENT DOSE OF PREDNISONE PRIOR TO SAE ONSET: 06/SEP/2016?ON DAYS 1-5 OF EACH 21-DAY CY
     Route: 048
     Dates: start: 20160506
  3. RITUXIMAB. [Suspect]
     Active Substance: RITUXIMAB
     Indication: NON-HODGKIN^S LYMPHOMA
     Dosage: DATE OF MOST RECENT DOSE (730 MG) OF RITUXIMAB PRIOR TO SAE ONSET: 09/NOV/2016 AT 12:30
     Route: 042
     Dates: start: 20160506
  4. DOXORUBICIN [Suspect]
     Active Substance: DOXORUBICIN
     Indication: NON-HODGKIN^S LYMPHOMA
     Dosage: DATE OF MOST RECENT DOSE (78 MG) OF DOXORUBICIN PRIOR TO SAE ONSET: 02/SEP/2016 AT 14:45
     Route: 042
     Dates: start: 20160506
  5. VENETOCLAX. [Suspect]
     Active Substance: VENETOCLAX
     Indication: NON-HODGKIN^S LYMPHOMA
     Dosage: 200 TO 800 MILLIGRAMS (MG)?DATE OF MOST RECENT DOSE OF VENETOCLAX (400 MG) PRIOR TO SAE ONSET: 08/SE
     Route: 048
     Dates: start: 20160509
  6. VINCRISTINE [Suspect]
     Active Substance: VINCRISTINE
     Indication: NON-HODGKIN^S LYMPHOMA
     Dosage: DATE OF MOST RECENT DOSE (1.6 MG/M2) OF VINCRISTINE PRIOR TO SAE ONSET: 02/SEP/2016 AT 15:05
     Route: 042
     Dates: start: 20160506

REACTIONS (1)
  - Acute myeloid leukaemia [Not Recovered/Not Resolved]

NARRATIVE: CASE EVENT DATE: 20180618
